FAERS Safety Report 8216878-X (Version None)
Quarter: 2012Q1

REPORT INFORMATION
  Report Type: 
  Country: None (occurrence: None)
  Receive Date: 20120316
  Receipt Date: 20120307
  Transmission Date: 20120608
  Serious: Yes (Hospitalization)
  Sender: FDA-Public Use
  Company Number: US-ASTRAZENECA-2012SE02956

PATIENT
  Age: 48 Year
  Sex: Female

DRUGS (10)
  1. SEROQUEL XR [Suspect]
     Route: 048
  2. FELODIPINE [Suspect]
     Route: 048
  3. AMLODIPINE [Concomitant]
     Route: 048
  4. LISINOPRIL [Concomitant]
     Route: 048
  5. XANAX [Concomitant]
     Route: 048
  6. DEXILANT [Concomitant]
     Route: 048
  7. PHENERGAN [Concomitant]
     Dosage: 25 MG PER 0.4 ML, AS DIRECTED TOPICALLY EVERY SIX HOUR AS NEEDED
     Route: 061
  8. CELEXA [Concomitant]
     Route: 048
  9. LORTAB [Concomitant]
     Dosage: 10/500 MG, 1 TABLET ORALLY EVERY SIX HOURS
     Route: 048
  10. TRAZODONE HCL [Concomitant]
     Route: 048

REACTIONS (3)
  - MALAISE [None]
  - NAUSEA [None]
  - DRUG HYPERSENSITIVITY [None]
